FAERS Safety Report 18158374 (Version 2)
Quarter: 2021Q2

REPORT INFORMATION
  Report Type: Spontaneous
  Country: US (occurrence: US)
  Receive Date: 20200817
  Receipt Date: 20210429
  Transmission Date: 20210717
  Serious: Yes (Hospitalization)
  Sender: FDA-Public Use
  Company Number: US-PURDUE-USA-2020-0161287

PATIENT
  Sex: Female

DRUGS (2)
  1. OXYCODONE HCL TABLETS (RHODES 91?490) [Suspect]
     Active Substance: OXYCODONE HYDROCHLORIDE
     Indication: PRODUCT USED FOR UNKNOWN INDICATION
     Dosage: 5 MG, UNK
     Route: 048
  2. TRAMADOL CR TABLETS (RHODES 21?745) [Suspect]
     Active Substance: TRAMADOL
     Indication: PAIN
     Dosage: 50 MG, Q6? 8H AS NEEDED
     Route: 048

REACTIONS (6)
  - Somnolence [Unknown]
  - Back pain [Unknown]
  - Constipation [Unknown]
  - Dizziness [Unknown]
  - Insomnia [Unknown]
  - Spinal operation [Unknown]

NARRATIVE: CASE EVENT DATE: 201506
